FAERS Safety Report 4793476-1 (Version None)
Quarter: 2005Q4

REPORT INFORMATION
  Report Type: 
  Country: None (occurrence: None)
  Receive Date: 20051011
  Receipt Date: 20050623
  Transmission Date: 20060501
  Serious: No
  Sender: FDA-Public Use
  Company Number: US-BRISTOL-MYERS SQUIBB COMPANY-13018940

PATIENT
  Age: 75 Year
  Sex: Female

DRUGS (10)
  1. METFORMIN HCL XR TABS [Suspect]
     Indication: DIABETES MELLITUS NON-INSULIN-DEPENDENT
     Dates: start: 20030201
  2. LEVOTHYROXINE [Concomitant]
     Indication: THYROIDECTOMY
  3. ASPIRIN [Concomitant]
  4. CALCIUM GLUCONATE [Concomitant]
  5. VERAPAMIL [Concomitant]
  6. HYDROCHLOROTHIAZIDE [Concomitant]
  7. GABAPENTIN [Concomitant]
  8. LISINOPRIL [Concomitant]
  9. FUROSEMIDE [Concomitant]
  10. INSULIN [Concomitant]

REACTIONS (2)
  - BLOOD THYROID STIMULATING HORMONE DECREASED [None]
  - GLYCOSYLATED HAEMOGLOBIN INCREASED [None]
